FAERS Safety Report 6761576-2 (Version None)
Quarter: 2010Q2

REPORT INFORMATION
  Report Type: 
  Country: None (occurrence: None)
  Receive Date: 20100609
  Receipt Date: 20100602
  Transmission Date: 20101027
  Serious: Yes (Hospitalization)
  Sender: FDA-Public Use
  Company Number: US-BIOGENIDEC-2010BI018678

PATIENT
  Age: 76 Year
  Sex: Female

DRUGS (2)
  1. AVONEX [Suspect]
     Indication: MULTIPLE SCLEROSIS
     Route: 030
     Dates: start: 20061115
  2. AVONEX [Suspect]
     Route: 030
     Dates: start: 20000420, end: 20060803

REACTIONS (6)
  - DRUG HYPERSENSITIVITY [None]
  - FALL [None]
  - HUMERUS FRACTURE [None]
  - JOINT DISLOCATION [None]
  - PNEUMONIA ASPIRATION [None]
  - URINARY TRACT INFECTION [None]
